FAERS Safety Report 9695166 (Version 1)
Quarter: 2013Q4

REPORT INFORMATION
  Report Type: Report from Study
  Country: FR (occurrence: FR)
  Receive Date: 20131119
  Receipt Date: 20131119
  Transmission Date: 20140711
  Serious: Yes (Other)
  Sender: FDA-Public Use
  Company Number: FR-MYLANLABS-2013S1025252

PATIENT
  Age: 51 Year
  Sex: Male

DRUGS (4)
  1. RITUXIMAB [Suspect]
     Indication: CRYOGLOBULINAEMIA
     Dosage: INFUSION ON D1?EVERY 4 WEEKS
     Route: 050
  2. FLUDARABINE [Suspect]
     Indication: CRYOGLOBULINAEMIA
     Dosage: 40 MG/M2 ON D2-4 EVERY 4W
     Route: 048
  3. CYCLOPHOSPHAMIDE [Suspect]
     Indication: CRYOGLOBULINAEMIA
     Dosage: 250 MG/M2 ON D2-4 EVERY 4W
     Route: 048
  4. METHYLPREDNISOLONE [Concomitant]
     Indication: PREMEDICATION
     Dosage: 40MG BEFORE EACH CYCLE
     Route: 042

REACTIONS (2)
  - Pancytopenia [Unknown]
  - Serum sickness [Unknown]
